FAERS Safety Report 21722560 (Version 1)
Quarter: 2022Q4

REPORT INFORMATION
  Report Type: Spontaneous
  Country: US (occurrence: US)
  Receive Date: 20221213
  Receipt Date: 20221213
  Transmission Date: 20230113
  Serious: No
  Sender: FDA-Public Use
  Company Number: US-PFIZER INC-202201362622

PATIENT
  Age: 70 Year
  Sex: Female

DRUGS (1)
  1. PAXLOVID [Suspect]
     Active Substance: NIRMATRELVIR\RITONAVIR
     Indication: COVID-19 treatment
     Dosage: UNK
     Dates: start: 20221117, end: 20221121

REACTIONS (8)
  - Dyspnoea exertional [Recovering/Resolving]
  - Cough [Recovering/Resolving]
  - Oropharyngeal pain [Recovering/Resolving]
  - Myalgia [Recovering/Resolving]
  - Dysphonia [Recovering/Resolving]
  - Fatigue [Recovering/Resolving]
  - Poor quality sleep [Recovering/Resolving]
  - Chills [Recovering/Resolving]

NARRATIVE: CASE EVENT DATE: 20221203
